FAERS Safety Report 20657728 (Version 1)
Quarter: 2022Q1

REPORT INFORMATION
  Report Type: Spontaneous
  Country: US (occurrence: None)
  Receive Date: 20220330
  Receipt Date: 20220330
  Transmission Date: 20220423
  Serious: No
  Sender: FDA-Public Use
  Company Number: None

PATIENT
  Sex: Male

DRUGS (1)
  1. STELARA [Suspect]
     Active Substance: USTEKINUMAB
     Indication: Crohn^s disease
     Dosage: 90MG/1ML EVERY 4 WEEKS SUBCUTANEOULY? ?
     Route: 058
     Dates: start: 20211025

REACTIONS (2)
  - Treatment failure [None]
  - Off label use [None]
